FAERS Safety Report 12293778 (Version 2)
Quarter: 2017Q1

REPORT INFORMATION
  Report Type: Spontaneous
  Country: US (occurrence: US)
  Receive Date: 20160421
  Receipt Date: 20170110
  Transmission Date: 20170428
  Serious: No
  Sender: FDA-Public Use
  Company Number: US-ARBOR PHARMACEUTICALS, LLC-US-2015ARB001206

PATIENT

DRUGS (5)
  1. MAGNESIUM [Concomitant]
     Active Substance: MAGNESIUM
     Dosage: 250 MG, UNK
  2. VITAMIN B12 [Concomitant]
     Active Substance: CYANOCOBALAMIN
     Dosage: 500 ?G, UNK
  3. VITAMIN D                          /00107901/ [Concomitant]
     Active Substance: ERGOCALCIFEROL
     Dosage: 50000 IU, UNK
  4. EDARBI [Suspect]
     Active Substance: AZILSARTAN KAMEDOXOMIL
     Indication: HYPERTENSION
     Dosage: 40 MG, QD
     Route: 048
     Dates: start: 20150728, end: 20150918
  5. PRAZOSIN [Concomitant]
     Active Substance: PRAZOSIN
     Dosage: 1 MG, UNK

REACTIONS (1)
  - Rash [Unknown]

NARRATIVE: CASE EVENT DATE: 2015
